FAERS Safety Report 24127793 (Version 1)
Quarter: 2024Q3

REPORT INFORMATION
  Report Type: Spontaneous
  Country: US (occurrence: US)
  Receive Date: 20240723
  Receipt Date: 20240723
  Transmission Date: 20241017
  Serious: Yes (Other)
  Sender: JOHNSON AND JOHNSON
  Company Number: US-JNJFOC-20240755441

PATIENT
  Sex: Female
  Weight: 94.1 kg

DRUGS (3)
  1. DARZALEX [Suspect]
     Active Substance: DARATUMUMAB
     Indication: Plasma cell myeloma
     Route: 065
  2. POMALIDOMIDE [Suspect]
     Active Substance: POMALIDOMIDE
     Indication: Plasma cell myeloma
     Dosage: LAST DOSE WAS ADMINISTERED ON JUN-2020
     Route: 065
     Dates: start: 202002
  3. DEXAMETHASONE [Suspect]
     Active Substance: DEXAMETHASONE
     Indication: Plasma cell myeloma
     Dosage: LAST DOSE WAS ADMINISTERED ON MAY-2024
     Route: 065
     Dates: start: 202002

REACTIONS (1)
  - Plasma cell myeloma [Unknown]
